FAERS Safety Report 14313488 (Version 3)
Quarter: 2018Q1

REPORT INFORMATION
  Report Type: Spontaneous
  Country: US (occurrence: US)
  Receive Date: 20171221
  Receipt Date: 20180216
  Transmission Date: 20180509
  Serious: No
  Sender: FDA-Public Use
  Company Number: US-GLAXOSMITHKLINE-US2017196847

PATIENT
  Age: 86 Year
  Sex: Male

DRUGS (4)
  1. VENTOLIN HFA [Suspect]
     Active Substance: ALBUTEROL SULFATE
     Indication: ASTHMA
     Dosage: 2 PUFF(S), PRN
     Route: 055
  2. LUMIGAN [Concomitant]
     Active Substance: BIMATOPROST
  3. SIMBRINZA [Concomitant]
     Active Substance: BRIMONIDINE TARTRATE\BRINZOLAMIDE
  4. PILOCARPINE. [Concomitant]
     Active Substance: PILOCARPINE

REACTIONS (4)
  - Agitation [Recovered/Resolved]
  - Drug ineffective [Unknown]
  - Insomnia [Unknown]
  - Product quality issue [Unknown]

NARRATIVE: CASE EVENT DATE: 20171218
